FAERS Safety Report 6515737-8 (Version None)
Quarter: 2009Q4

REPORT INFORMATION
  Report Type: 
  Country: None (occurrence: None)
  Receive Date: 20091223
  Receipt Date: 20091216
  Transmission Date: 20100525
  Serious: Yes (Hospitalization)
  Sender: FDA-Public Use
  Company Number: JP-JNJFOC-20091205386

PATIENT
  Age: 12 Year
  Sex: Female
  Weight: 29.1 kg

DRUGS (2)
  1. REMICADE [Suspect]
     Route: 042
  2. REMICADE [Suspect]
     Indication: CROHN'S DISEASE
     Dosage: 8 DOSES
     Route: 042

REACTIONS (2)
  - MALAISE [None]
  - RASH [None]
